FAERS Safety Report 17088883 (Version 1)
Quarter: 2019Q4

REPORT INFORMATION
  Report Type: Spontaneous
  Country: ES (occurrence: ES)
  Receive Date: 20191128
  Receipt Date: 20191128
  Transmission Date: 20200122
  Serious: Yes (Other)
  Sender: FDA-Public Use
  Company Number: NVSC2019ES004163

PATIENT
  Age: 76 Year
  Sex: Female

DRUGS (8)
  1. BISOPROLOL [Concomitant]
     Active Substance: BISOPROLOL
     Indication: PRODUCT USED FOR UNKNOWN INDICATION
     Dosage: 10 MG
     Route: 065
  2. LETROZOLE. [Concomitant]
     Active Substance: LETROZOLE
     Indication: PRODUCT USED FOR UNKNOWN INDICATION
     Dosage: UNK
     Route: 065
     Dates: end: 20160509
  3. PALBOCICLIB [Suspect]
     Active Substance: PALBOCICLIB
     Dosage: 125 MG, QD
     Route: 065
  4. FULVESTRANT. [Suspect]
     Active Substance: FULVESTRANT
     Indication: BREAST CANCER
     Dosage: 500 MG, QMO (+500 MG D14)
     Route: 030
     Dates: end: 20190513
  5. FULVESTRANT. [Suspect]
     Active Substance: FULVESTRANT
     Dosage: UNK UNK, QMO
     Route: 030
  6. PALBOCICLIB [Suspect]
     Active Substance: PALBOCICLIB
     Indication: BREAST CANCER
     Dosage: 125 MG, CYCLIC (DAILY, 125 MG D1 TO D21 C / 28D)
     Route: 065
     Dates: start: 20181129, end: 20190513
  7. TRANXILIUM [Concomitant]
     Active Substance: CLORAZEPATE DIPOTASSIUM
     Indication: PRODUCT USED FOR UNKNOWN INDICATION
     Dosage: 5 MG, QHS (AT BEDTIME)
     Route: 065
  8. HYDROCHLOROTHIAZIDE. [Concomitant]
     Active Substance: HYDROCHLOROTHIAZIDE
     Indication: PRODUCT USED FOR UNKNOWN INDICATION
     Dosage: 12.5 MG, QD
     Route: 065

REACTIONS (7)
  - Dyspnoea [Recovering/Resolving]
  - Asthenia [Recovered/Resolved]
  - Asthenia [Not Recovered/Not Resolved]
  - Alopecia [Unknown]
  - Musculoskeletal chest pain [Unknown]
  - Spinal pain [Recovering/Resolving]
  - Neutropenia [Unknown]

NARRATIVE: CASE EVENT DATE: 20190225
